FAERS Safety Report 14000144 (Version 1)
Quarter: 2017Q3

REPORT INFORMATION
  Report Type: Report from Study
  Country: BR (occurrence: BR)
  Receive Date: 20170922
  Receipt Date: 20170922
  Transmission Date: 20171128
  Serious: Yes (Other)
  Sender: FDA-Public Use
  Company Number: PHHY2017BR137604

PATIENT
  Sex: Female
  Weight: 76 kg

DRUGS (1)
  1. SANDOSTATIN LAR DEPOT [Suspect]
     Active Substance: OCTREOTIDE ACETATE
     Indication: ACRAL OVERGROWTH
     Dosage: 20 MG, QMO
     Route: 065

REACTIONS (6)
  - Arteriosclerosis [Unknown]
  - Weight increased [Unknown]
  - Diabetes mellitus [Unknown]
  - Tendon injury [Unknown]
  - Bursitis [Unknown]
  - Visual impairment [Unknown]
